FAERS Safety Report 24773065 (Version 2)
Quarter: 2024Q4

REPORT INFORMATION
  Report Type: Spontaneous
  Country: US (occurrence: US)
  Receive Date: 20241225
  Receipt Date: 20241225
  Transmission Date: 20250115
  Serious: Yes (Other)
  Sender: AMGEN
  Company Number: US-AMGEN-USASP2024251154

PATIENT

DRUGS (7)
  1. CARFILZOMIB [Suspect]
     Active Substance: CARFILZOMIB
     Indication: Plasma cell myeloma refractory
     Dosage: UNK, 1(N=3) 20/27 MG/M^2, 2A(N=5) 20/36 MG/M^2, 2B(N=14) 20/36 MG/M^2, 3B(N=18) 20/36 MG/M^2
     Route: 065
  2. IBRUTINIB [Suspect]
     Active Substance: IBRUTINIB
     Indication: Plasma cell myeloma refractory
     Dosage: UNK, 1 (N=3) 560 MG/QD, 2A (N=5) 560 MG/QD, 2B(N=14) 560 MG/QD, 3B(N=18) 840 MG/QD
     Route: 065
  3. DEXAMETHASONE [Suspect]
     Active Substance: DEXAMETHASONE
     Indication: Plasma cell myeloma refractory
     Dosage: 20 MILLIGRAM (2B(N=14), 3B(N=18))
     Route: 065
  4. BORTEZOMIB [Suspect]
     Active Substance: BORTEZOMIB
     Indication: Plasma cell myeloma refractory
     Dosage: UNK
     Route: 065
  5. POMALIDOMIDE [Suspect]
     Active Substance: POMALIDOMIDE
     Indication: Plasma cell myeloma refractory
     Dosage: UNK
     Route: 065
  6. THALIDOMIDE [Suspect]
     Active Substance: THALIDOMIDE
     Indication: Plasma cell myeloma refractory
     Dosage: UNK
     Route: 065
  7. LENALIDOMIDE [Suspect]
     Active Substance: LENALIDOMIDE
     Indication: Plasma cell myeloma refractory
     Dosage: UNK
     Route: 065

REACTIONS (13)
  - Plasma cell myeloma refractory [Unknown]
  - Thrombocytopenia [Unknown]
  - Neutropenia [Unknown]
  - Fatigue [Unknown]
  - Anaemia [Unknown]
  - Pneumonia [Unknown]
  - Hypertension [Unknown]
  - Diarrhoea [Unknown]
  - Cough [Unknown]
  - Constipation [Unknown]
  - Nausea [Unknown]
  - Adverse event [Unknown]
  - Drug ineffective [Unknown]
